FAERS Safety Report 8333425-2 (Version None)
Quarter: 2012Q2

REPORT INFORMATION
  Report Type: 
  Country: None (occurrence: None)
  Receive Date: 20120503
  Receipt Date: 20120424
  Transmission Date: 20120825
  Serious: Yes (Other)
  Sender: FDA-Public Use
  Company Number: BR-ASTRAZENECA-2012SE27211

PATIENT
  Age: 58 Year
  Sex: Female
  Weight: 50 kg

DRUGS (7)
  1. NEXIUM [Suspect]
     Indication: GASTRITIS
     Route: 048
     Dates: end: 20120419
  2. LIBIAM [Concomitant]
     Indication: HORMONE REPLACEMENT THERAPY
     Route: 048
  3. LEVOTHYROXINE SODIUM [Concomitant]
     Route: 048
     Dates: start: 20020101
  4. NEXIUM [Suspect]
     Route: 048
     Dates: start: 20120420
  5. SIMVASTATIN [Concomitant]
     Indication: BLOOD CHOLESTEROL INCREASED
     Route: 048
     Dates: start: 20090101
  6. LAMOTRIGINE [Concomitant]
     Route: 048
  7. UNSPECIFIED [Concomitant]
     Indication: GASTRITIS
     Route: 048

REACTIONS (7)
  - HYPERTENSION [None]
  - APTYALISM [None]
  - DYSGEUSIA [None]
  - DIABETES MELLITUS [None]
  - DENTAL CARIES [None]
  - ABDOMINAL DISCOMFORT [None]
  - INTENTIONAL DRUG MISUSE [None]
